FAERS Safety Report 6969662-9 (Version None)
Quarter: 2010Q3

REPORT INFORMATION
  Report Type: 
  Country: None (occurrence: None)
  Receive Date: 20100908
  Receipt Date: 20100830
  Transmission Date: 20110219
  Serious: Yes (Hospitalization)
  Sender: FDA-Public Use
  Company Number: US-US-EMD SERONO, INC.-7009419

PATIENT
  Sex: Female
  Weight: 118 kg

DRUGS (6)
  1. REBIF [Suspect]
     Indication: MULTIPLE SCLEROSIS
     Route: 058
     Dates: start: 20060101, end: 20100511
  2. BENICAR HCT [Concomitant]
     Indication: HYPERTENSION
     Dates: start: 20070101
  3. NORVASC [Concomitant]
     Indication: HYPERTENSION
     Dates: start: 20070101
  4. SINGULAIR [Concomitant]
     Indication: ASTHMA
     Dates: start: 20090101
  5. ZOCOR [Concomitant]
     Indication: BLOOD CHOLESTEROL INCREASED
     Dates: start: 20080101
  6. GABAPENTIN [Concomitant]
     Indication: MULTIPLE SCLEROSIS

REACTIONS (2)
  - DRUG ERUPTION [None]
  - STAPHYLOCOCCAL INFECTION [None]
